FAERS Safety Report 4497279-7 (Version None)
Quarter: 2004Q4

REPORT INFORMATION
  Report Type: 
  Country: None (occurrence: None)
  Receive Date: 20041110
  Receipt Date: 20041104
  Transmission Date: 20050328
  Serious: Yes (Death)
  Sender: FDA-Public Use
  Company Number: US-JNJFOC-20040904216

PATIENT
  Age: 69 Year
  Sex: Male

DRUGS (2)
  1. DURAGESIC [Suspect]
     Indication: CANCER PAIN
     Route: 062
     Dates: start: 20040401, end: 20040801
  2. UNSPECIFIED MEDICATIONS [Concomitant]

REACTIONS (1)
  - MYOCARDIAL INFARCTION [None]
